FAERS Safety Report 20317934 (Version 1)
Quarter: 2022Q1

REPORT INFORMATION
  Report Type: Spontaneous
  Country: DE (occurrence: DE)
  Receive Date: 20220110
  Receipt Date: 20220110
  Transmission Date: 20220423
  Serious: Yes (Other)
  Sender: FDA-Public Use
  Company Number: DE-002147023-NVSC2021DE291110

PATIENT
  Sex: Female

DRUGS (1)
  1. TAMOXIFEN [Suspect]
     Active Substance: TAMOXIFEN
     Indication: Product used for unknown indication
     Dosage: UNK
     Route: 065

REACTIONS (14)
  - Transient ischaemic attack [Unknown]
  - Lenticular opacities [Unknown]
  - Visual impairment [Unknown]
  - Cerebrovascular disorder [Unknown]
  - Somnolence [Unknown]
  - Dyspepsia [Unknown]
  - Pruritus genital [Unknown]
  - Muscle spasms [Unknown]
  - Hot flush [Unknown]
  - Blood calcium increased [Unknown]
  - Vaginal discharge [Unknown]
  - Ovarian cyst [Unknown]
  - Fatigue [Unknown]
  - Alopecia [Unknown]

NARRATIVE: CASE EVENT DATE: 20210101
